FAERS Safety Report 5094018-6 (Version None)
Quarter: 2006Q3

REPORT INFORMATION
  Report Type: 
  Country: None (occurrence: None)
  Receive Date: 20060829
  Receipt Date: 20060814
  Transmission Date: 20061208
  Serious: Yes (Death, Hospitalization)
  Sender: FDA-Public Use
  Company Number: 2006BH011683

PATIENT
  Age: 41 Year
  Sex: Female
  Weight: 95.5 kg

DRUGS (17)
  1. DIANEAL [Suspect]
     Indication: PERITONEAL DIALYSIS
     Dosage: 17.4 L;EVERY DAY;IP
     Route: 033
     Dates: start: 19980320, end: 20060501
  2. EXTRANEAL [Suspect]
     Indication: PERITONEAL DIALYSIS
     Dosage: 2.5 L;IP
     Route: 033
     Dates: end: 20060501
  3. L-THYROXINE [Concomitant]
  4. OMEPRAZOLE [Concomitant]
  5. ENZYM-LEFAX ^BAYER^ [Concomitant]
  6. VITARENAL [Concomitant]
  7. MEDROXYPROGESTERONE ACETATE [Concomitant]
  8. AMINEURIN [Concomitant]
  9. TEMEGESIC ^SCHERING-PLOUGH^ [Concomitant]
  10. FLUOXETINE [Concomitant]
  11. DEKRISTOL [Concomitant]
  12. ENALAPRIL [Concomitant]
  13. CALCIMAGON [Concomitant]
  14. POTASSIUM CHLORIDE [Concomitant]
  15. NEORECORMON ^BOEHRINGER MANNHEIM^ [Concomitant]
  16. VENOFER [Concomitant]
  17. DECOSTRIOL [Concomitant]

REACTIONS (7)
  - ENTEROBACTER INFECTION [None]
  - FUNGAL PERITONITIS [None]
  - INTRA-ABDOMINAL HAEMORRHAGE [None]
  - PERITONITIS BACTERIAL [None]
  - PERITONITIS SCLEROSING [None]
  - SMALL INTESTINAL PERFORATION [None]
  - STAPHYLOCOCCAL INFECTION [None]
